FAERS Safety Report 4675044-5 (Version None)
Quarter: 2005Q2

REPORT INFORMATION
  Report Type: 
  Country: None (occurrence: None)
  Receive Date: 20050526
  Receipt Date: 20050517
  Transmission Date: 20051028
  Serious: Yes (Hospitalization)
  Sender: FDA-Public Use
  Company Number: US-MERCK-0505USA02299

PATIENT
  Age: 57 Year
  Sex: Female

DRUGS (14)
  1. PRINIVIL [Suspect]
     Route: 048
  2. TIAZAC [Suspect]
     Route: 065
  3. NASONEX [Suspect]
     Route: 065
  4. AVELOX [Suspect]
     Indication: BRONCHITIS
     Route: 065
     Dates: start: 20050324
  5. ESTRACE [Suspect]
     Route: 065
  6. LIPITOR [Suspect]
     Route: 065
  7. NASACORT [Suspect]
     Route: 065
  8. NAPROSYN [Suspect]
     Route: 065
  9. LASIX [Suspect]
     Route: 065
  10. TOPROL-XL [Suspect]
     Route: 065
  11. PREDNISONE [Suspect]
     Route: 065
  12. HUMIBID L.A. [Suspect]
     Route: 065
  13. COMBIVENT [Suspect]
     Route: 065
  14. COUMADIN [Suspect]
     Route: 065

REACTIONS (2)
  - ABDOMINAL HAEMATOMA [None]
  - BRONCHITIS [None]
